FAERS Safety Report 9034087 (Version 1)
Quarter: 2013Q1

REPORT INFORMATION
  Report Type: Spontaneous
  Country: US (occurrence: None)
  Receive Date: 20130116
  Receipt Date: 20130116
  Transmission Date: 20140127
  Serious: Yes (Life-Threatening, Other)
  Sender: FDA-Public Use
  Company Number: None

PATIENT
  Age: 22 Year
  Sex: Male
  Weight: 179.63 kg

DRUGS (2)
  1. VALPROIC ACID [Suspect]
     Indication: INTERMITTENT EXPLOSIVE DISORDER
     Dates: start: 20081125, end: 20081130
  2. VALPROIC ACID [Suspect]
     Indication: BIPOLAR DISORDER

REACTIONS (3)
  - Product substitution issue [None]
  - Drug level changed [None]
  - Physical assault [None]
